FAERS Safety Report 11723178 (Version 1)
Quarter: 2015Q4

REPORT INFORMATION
  Report Type: Spontaneous
  Country: US (occurrence: None)
  Receive Date: 20151110
  Receipt Date: 20151110
  Transmission Date: 20160304
  Serious: Yes (Life-Threatening, Hospitalization, Disabling)
  Sender: FDA-Public Use
  Company Number: None

PATIENT
  Age: 39 Year
  Sex: Female
  Weight: 66.23 kg

DRUGS (7)
  1. PROBIOTICS [Concomitant]
     Active Substance: PROBIOTICS NOS
  2. HERBAL TEAS [Concomitant]
     Active Substance: HERBALS
  3. LEVOFLOXACIN 500 MG LUPIN [Suspect]
     Active Substance: LEVOFLOXACIN
     Indication: SINUSITIS
     Dosage: 1 TABLET ONCE DAILY  TAKEN BY MOUTH
     Route: 048
     Dates: start: 20151008, end: 20151009
  4. LEVOFLOXACIN 500 MG LUPIN [Suspect]
     Active Substance: LEVOFLOXACIN
     Indication: PYREXIA
     Dosage: 1 TABLET ONCE DAILY  TAKEN BY MOUTH
     Route: 048
     Dates: start: 20151008, end: 20151009
  5. LEVOFLOXACIN 500 MG LUPIN [Suspect]
     Active Substance: LEVOFLOXACIN
     Indication: PAIN
     Dosage: 1 TABLET ONCE DAILY  TAKEN BY MOUTH
     Route: 048
     Dates: start: 20151008, end: 20151009
  6. DEPICOTE [Concomitant]
  7. HERBAL OILS [Concomitant]

REACTIONS (13)
  - Insomnia [None]
  - Apparent death [None]
  - Headache [None]
  - Nausea [None]
  - Pyrexia [None]
  - Tremor [None]
  - Hallucination [None]
  - Paranoia [None]
  - Paraesthesia [None]
  - Mania [None]
  - Mental impairment [None]
  - Delusion [None]
  - Tachyphrenia [None]

NARRATIVE: CASE EVENT DATE: 20151009
